FAERS Safety Report 16735954 (Version 1)
Quarter: 2019Q4

REPORT INFORMATION
  Report Type: Spontaneous
  Country: US (occurrence: US)
  Receive Date: 20190823
  Receipt Date: 20190823
  Transmission Date: 20200122
  Serious: Yes (Death)
  Sender: FDA-Public Use
  Company Number: None

PATIENT
  Age: 86 Year
  Sex: Male
  Weight: 62.41 kg

DRUGS (16)
  1. VITAMIN C [Concomitant]
     Active Substance: ASCORBIC ACID
  2. FERROUS GLUCONATE [Concomitant]
     Active Substance: FERROUS GLUCONATE
  3. SALMON OIL-1000 [Concomitant]
  4. CALCIUM + D3 [Concomitant]
     Active Substance: CALCIUM\CHOLECALCIFEROL
  5. INLYTA [Suspect]
     Active Substance: AXITINIB
     Indication: RENAL CANCER
     Route: 048
     Dates: start: 20190628, end: 20190818
  6. GLUCOSAMINE CHONDROITIN 1500 COMPLEX [Concomitant]
  7. MULTIVITAMIN ADULT [Concomitant]
  8. ACIDOPHILUS EXTRA STRENGTH [Concomitant]
  9. METOPROLOL TARTRATE. [Concomitant]
     Active Substance: METOPROLOL TARTRATE
  10. PREDNISONE. [Concomitant]
     Active Substance: PREDNISONE
  11. PRAVASTATIN. [Concomitant]
     Active Substance: PRAVASTATIN
  12. SOY LECITHIN [Concomitant]
     Active Substance: LECITHIN, SOYBEAN
  13. STOOL SOFTENER (DOCUSATE) [Concomitant]
     Active Substance: DOCUSATE
  14. TAMSULOSIN [Concomitant]
     Active Substance: TAMSULOSIN
  15. ELIQUIS [Concomitant]
     Active Substance: APIXABAN
  16. OMEPRAZOLE. [Concomitant]
     Active Substance: OMEPRAZOLE

REACTIONS (1)
  - Death [None]

NARRATIVE: CASE EVENT DATE: 20190818
